FAERS Safety Report 6117601-5 (Version None)
Quarter: 2009Q1

REPORT INFORMATION
  Report Type: 
  Country: None (occurrence: None)
  Receive Date: 20090314
  Receipt Date: 20090126
  Transmission Date: 20090719
  Serious: Yes (Hospitalization)
  Sender: FDA-Public Use
  Company Number: US-ABBOTT-09P-163-0499713-00

PATIENT
  Sex: Female
  Weight: 81.72 kg

DRUGS (6)
  1. HUMIRA [Suspect]
     Indication: RHEUMATOID ARTHRITIS
     Route: 058
     Dates: start: 20090120
  2. HUMIRA [Suspect]
     Dosage: ON HOLD
     Route: 058
     Dates: start: 20080101, end: 20081228
  3. PREDNISONE [Concomitant]
     Indication: RHEUMATOID ARTHRITIS
     Route: 048
  4. RELAFEN [Concomitant]
     Indication: RHEUMATOID ARTHRITIS
     Route: 048
  5. LISINOPRIL [Concomitant]
     Indication: HYPERTENSION
     Dosage: UNSURE OF STRENGTH
     Route: 048
  6. VICODIN [Concomitant]
     Indication: PAIN
     Dosage: UNSURE OF STRENGTH
     Route: 048
     Dates: start: 20090103

REACTIONS (4)
  - FIBULA FRACTURE [None]
  - OPEN FRACTURE [None]
  - ROAD TRAFFIC ACCIDENT [None]
  - TIBIA FRACTURE [None]
